FAERS Safety Report 9521627 (Version 10)
Quarter: 2014Q3

REPORT INFORMATION
  Report Type: Report from Study
  Country: CA (occurrence: CA)
  Receive Date: 20130913
  Receipt Date: 20140814
  Transmission Date: 20150326
  Serious: Yes (Death, Other)
  Sender: FDA-Public Use
  Company Number: PHHY2013CA100095

PATIENT
  Age: 57 Year
  Sex: Female

DRUGS (2)
  1. SANDOSTATIN LAR DEPOT [Suspect]
     Active Substance: OCTREOTIDE ACETATE
     Indication: OFF LABEL USE
  2. SANDOSTATIN LAR DEPOT [Suspect]
     Active Substance: OCTREOTIDE ACETATE
     Indication: THYMOMA MALIGNANT
     Dosage: 20 MG, EVERY 4 WEEKS
     Route: 030
     Dates: start: 20121003

REACTIONS (16)
  - Asthenia [Unknown]
  - Decreased appetite [Unknown]
  - Dyspnoea [Unknown]
  - General physical health deterioration [Unknown]
  - Malaise [Unknown]
  - Bronchial neoplasm [Unknown]
  - Disease progression [Unknown]
  - Cough [Unknown]
  - Gastrointestinal disorder [Unknown]
  - Hypotension [Unknown]
  - Heart rate increased [Unknown]
  - Wheezing [Unknown]
  - Fatigue [Unknown]
  - Nausea [Unknown]
  - Death [Fatal]
  - Respiratory rate increased [Unknown]

NARRATIVE: CASE EVENT DATE: 20130820
